FAERS Safety Report 10470276 (Version 1)
Quarter: 2014Q3

REPORT INFORMATION
  Report Type: Spontaneous
  Country: US (occurrence: None)
  Receive Date: 20140904
  Receipt Date: 20140904
  Transmission Date: 20150326
  Serious: Yes (Other)
  Sender: FDA-Public Use
  Company Number: 227790

PATIENT
  Age: 59 Year
  Sex: Female

DRUGS (1)
  1. PICATO [Suspect]
     Active Substance: INGENOL MEBUTATE
     Indication: ACTINIC KERATOSIS
     Route: 061
     Dates: start: 20140517, end: 20140519

REACTIONS (6)
  - Application site pain [None]
  - Periorbital oedema [None]
  - Eye swelling [None]
  - Application site scab [None]
  - Application site swelling [None]
  - Drug administered at inappropriate site [None]

NARRATIVE: CASE EVENT DATE: 20140517
